FAERS Safety Report 15706858 (Version 1)
Quarter: 2018Q4

REPORT INFORMATION
  Report Type: Spontaneous
  Country: IT (occurrence: IT)
  Receive Date: 20181210
  Receipt Date: 20181210
  Transmission Date: 20190205
  Serious: Yes (Disabling)
  Sender: FDA-Public Use
  Company Number: IT-BAUSCH-BL-2018-034373

PATIENT
  Age: 83 Year
  Sex: Female
  Weight: 59 kg

DRUGS (2)
  1. CARTEOL [Suspect]
     Active Substance: CARTEOLOL
     Indication: GLAUCOMA
     Dates: start: 20000101
  2. NORMIX [Suspect]
     Active Substance: RIFAXIMIN
     Indication: PRODUCT USED FOR UNKNOWN INDICATION
     Route: 065
     Dates: start: 20000101, end: 20181121

REACTIONS (4)
  - Swelling face [Not Recovered/Not Resolved]
  - Chapped lips [Not Recovered/Not Resolved]
  - Eye pruritus [Not Recovered/Not Resolved]
  - Flushing [Not Recovered/Not Resolved]

NARRATIVE: CASE EVENT DATE: 20171201
